FAERS Safety Report 5269587-3 (Version None)
Quarter: 2007Q1

REPORT INFORMATION
  Report Type: 
  Country: None (occurrence: None)
  Receive Date: 20070320
  Receipt Date: 20070309
  Transmission Date: 20070707
  Serious: Yes (Other)
  Sender: FDA-Public Use
  Company Number: US-JNJFOC-20070200203

PATIENT
  Sex: Female
  Weight: 54.43 kg

DRUGS (3)
  1. LEVAQUIN [Suspect]
     Indication: DIVERTICULITIS
     Route: 042
  2. LEVAQUIN [Suspect]
     Route: 048
  3. FLAGYL [Concomitant]
     Indication: DIVERTICULITIS
     Route: 065

REACTIONS (6)
  - DYSGEUSIA [None]
  - FLUID RETENTION [None]
  - JOINT STIFFNESS [None]
  - JOINT SWELLING [None]
  - PAIN [None]
  - VISUAL DISTURBANCE [None]
